FAERS Safety Report 4540603-7 (Version None)
Quarter: 2004Q4

REPORT INFORMATION
  Report Type: 
  Country: None (occurrence: None)
  Receive Date: 20041229
  Receipt Date: 20041129
  Transmission Date: 20050328
  Serious: Yes (Life-Threatening, Hospitalization, Other)
  Sender: FDA-Public Use
  Company Number: PHHO2004NO16812

PATIENT
  Age: 51 Year
  Sex: Male

DRUGS (3)
  1. NEORAL [Suspect]
     Indication: RENAL TRANSPLANT
     Dosage: 75 MG, BID
     Route: 048
     Dates: start: 20040404
  2. PREDNISOLONE [Suspect]
     Indication: RENAL TRANSPLANT
     Dosage: 5 MG, QD
     Route: 048
     Dates: start: 20040404
  3. RAD001 [Suspect]
     Indication: RENAL TRANSPLANT
     Dosage: 0.75 MG, BID
     Route: 048
     Dates: start: 20040528, end: 20040908

REACTIONS (8)
  - CHOLECYSTITIS INFECTIVE [None]
  - COLECTOMY PARTIAL [None]
  - COLITIS ISCHAEMIC [None]
  - ESCHERICHIA INFECTION [None]
  - GALLBLADDER DRAINAGE [None]
  - HAEMATOMA INFECTION [None]
  - HYPOTENSION [None]
  - SEPTIC SHOCK [None]
